FAERS Safety Report 23849498 (Version 1)
Quarter: 2024Q2

REPORT INFORMATION
  Report Type: Spontaneous
  Country: US (occurrence: None)
  Receive Date: 20240512
  Receipt Date: 20240512
  Transmission Date: 20240716
  Serious: Yes (Hospitalization)
  Sender: FDA-Public Use
  Company Number: None

PATIENT
  Age: 86 Year
  Sex: Male
  Weight: 77 kg

DRUGS (1)
  1. PACLITAXEL [Suspect]
     Active Substance: PACLITAXEL
     Indication: Acute respiratory failure
     Dosage: 200 MG ONE IV?
     Route: 042
     Dates: start: 20200727, end: 20200727

REACTIONS (2)
  - Respiratory depression [None]
  - Dyspnoea [None]

NARRATIVE: CASE EVENT DATE: 20200727
